FAERS Safety Report 9833049 (Version 2)
Quarter: 2014Q1

REPORT INFORMATION
  Report Type: Spontaneous
  Country: BR (occurrence: BR)
  Receive Date: 20140121
  Receipt Date: 20140121
  Transmission Date: 20141002
  Serious: Yes (Other)
  Sender: FDA-Public Use
  Company Number: BR-PFIZER INC-2014015971

PATIENT
  Sex: Male

DRUGS (1)
  1. TECTA [Suspect]
     Indication: GASTRITIS
     Dosage: 40 MG, UNK
     Route: 048

REACTIONS (9)
  - Kidney infection [Unknown]
  - Weight decreased [Unknown]
  - Urine output decreased [Unknown]
  - Fatigue [Unknown]
  - Asthenia [Unknown]
  - Sleep disorder [Unknown]
  - Abdominal discomfort [Unknown]
  - Dry mouth [Unknown]
  - Off label use [Unknown]
